APPROVED DRUG PRODUCT: CELLCEPT
Active Ingredient: MYCOPHENOLATE MOFETIL
Strength: 250MG
Dosage Form/Route: CAPSULE;ORAL
Application: N050722 | Product #001 | TE Code: AB
Applicant: ROCHE PALO ALTO LLC
Approved: May 3, 1995 | RLD: Yes | RS: Yes | Type: RX